FAERS Safety Report 5406568-0 (Version None)
Quarter: 2007Q3

REPORT INFORMATION
  Report Type: 
  Country: None (occurrence: None)
  Receive Date: 20070806
  Receipt Date: 20070725
  Transmission Date: 20080115
  Serious: Yes (Other)
  Sender: FDA-Public Use
  Company Number: FR-PFIZER INC-2007053678

PATIENT
  Sex: Female

DRUGS (7)
  1. XALATAN [Suspect]
     Indication: GLAUCOMA
     Dosage: DAILY DOSE:1DROP-FREQ:DAILY
     Dates: start: 20061212, end: 20070622
  2. XALATAN [Suspect]
     Indication: OCULAR HYPERTENSION
  3. XALATAN [Suspect]
     Indication: HYPERTONIA
  4. FLECAINIDE ACETATE [Concomitant]
     Route: 048
  5. LEVOTHYROXINE SODIUM [Concomitant]
     Route: 048
  6. COTAREG [Concomitant]
     Route: 048
  7. MEBEVERINE [Concomitant]
     Route: 048

REACTIONS (2)
  - IRIS ADHESIONS [None]
  - IRITIS [None]
